FAERS Safety Report 8282686-7 (Version None)
Quarter: 2012Q2

REPORT INFORMATION
  Report Type: 
  Country: None (occurrence: None)
  Receive Date: 20120413
  Receipt Date: 20120411
  Transmission Date: 20120825
  Serious: Yes (Death, Hospitalization, Disabling)
  Sender: FDA-Public Use
  Company Number: NZ-B.I. PHARMACEUTICALS,INC./RIDGEFIELD-2011-AU-00633AU

PATIENT
  Sex: Female

DRUGS (7)
  1. ALENDRONATE WITH VIT D [Concomitant]
     Dates: start: 20110706
  2. CILAZAPRIL [Concomitant]
     Dates: start: 20110404
  3. PRADAXA [Suspect]
     Indication: ATRIAL FIBRILLATION
     Dosage: 220 MG
     Dates: start: 20110704, end: 20110717
  4. ACETAMINOPHEN [Concomitant]
  5. FUROSEMIDE [Concomitant]
     Dosage: 80 MG
     Dates: start: 20060919
  6. SPIRONOLACTONE [Concomitant]
     Dates: start: 20110317
  7. PARACODE [Concomitant]

REACTIONS (5)
  - PROCEDURAL COMPLICATION [None]
  - HIP FRACTURE [None]
  - TRAUMATIC HAEMORRHAGE [None]
  - FALL [None]
  - HAEMATOMA [None]
